FAERS Safety Report 9126986 (Version 2)
Quarter: 2013Q2

REPORT INFORMATION
  Report Type: Spontaneous
  Country: IT (occurrence: IT)
  Receive Date: 20130228
  Receipt Date: 20130627
  Transmission Date: 20140414
  Serious: Yes (Other)
  Sender: FDA-Public Use
  Company Number: PHHY2013IT015430

PATIENT
  Age: 44 Year
  Sex: Male

DRUGS (2)
  1. TASIGNA [Suspect]
     Indication: CHRONIC MYELOID LEUKAEMIA
     Dosage: 800 MG, DAILY
     Route: 048
     Dates: start: 20110409, end: 20130206
  2. TASIGNA [Suspect]
     Dosage: 600 MG, DAILY
     Dates: start: 20130220

REACTIONS (5)
  - Helicobacter infection [Recovered/Resolved]
  - Abdominal pain [Recovered/Resolved]
  - Duodenal ulcer [Recovered/Resolved]
  - Gastritis erosive [Recovered/Resolved]
  - Transaminases increased [Unknown]
